FAERS Safety Report 4832805-7 (Version None)
Quarter: 2005Q4

REPORT INFORMATION
  Report Type: 
  Country: None (occurrence: None)
  Receive Date: 20051121
  Receipt Date: 20050815
  Transmission Date: 20060501
  Serious: Yes (Death)
  Sender: FDA-Public Use
  Company Number: DE-SANOFI-SYNTHELABO-F01200501538

PATIENT
  Sex: Male

DRUGS (5)
  1. OXALIPLATIN [Suspect]
     Indication: COLON CANCER
     Dosage: Q2W OR Q3W
     Route: 042
  2. CAPECITABINE [Suspect]
     Indication: COLON CANCER
     Route: 048
  3. BEVACIZUMAB [Suspect]
     Indication: COLON CANCER
     Dosage: Q2W OR Q3W
     Route: 042
  4. FRAGMIN [Concomitant]
     Dates: start: 20050518, end: 20050720
  5. PANTOZOL [Concomitant]
     Dates: start: 20050518, end: 20050720

REACTIONS (20)
  - ACUTE PULMONARY OEDEMA [None]
  - ARRHYTHMIA [None]
  - ARTERIOSCLEROSIS CORONARY ARTERY [None]
  - ARTERIOSPASM CORONARY [None]
  - ASPIRATION [None]
  - CARDIAC DEATH [None]
  - CARDIAC FAILURE [None]
  - CARDIAC FAILURE ACUTE [None]
  - CARDIOMEGALY [None]
  - DEATH [None]
  - HAEMOGLOBIN DECREASED [None]
  - HYPOXIA [None]
  - INJURY ASPHYXIATION [None]
  - LYMPHADENOPATHY [None]
  - METASTASIS [None]
  - PROTHROMBIN TIME PROLONGED [None]
  - PULMONARY HAEMORRHAGE [None]
  - VASODILATATION [None]
  - VEIN DISORDER [None]
  - VOMITING [None]
